FAERS Safety Report 5862509-3 (Version None)
Quarter: 2008Q3

REPORT INFORMATION
  Report Type: 
  Country: None (occurrence: None)
  Receive Date: 20080828
  Receipt Date: 20080521
  Transmission Date: 20090109
  Serious: No
  Sender: FDA-Public Use
  Company Number: US-BAYER-200823953NA

PATIENT
  Sex: Female

DRUGS (1)
  1. YASMIN [Suspect]
     Indication: ABDOMINAL PAIN
     Route: 048

REACTIONS (2)
  - NO ADVERSE EVENT [None]
  - OFF LABEL USE [None]
